FAERS Safety Report 9640701 (Version 1)
Quarter: 2013Q4

REPORT INFORMATION
  Report Type: Spontaneous
  Country: US (occurrence: None)
  Receive Date: 20131022
  Receipt Date: 20131022
  Transmission Date: 20140711
  Serious: Yes (Other)
  Sender: FDA-Public Use
  Company Number: None

PATIENT
  Age: 67 Year
  Sex: Female

DRUGS (1)
  1. EPI PEN [Suspect]
     Indication: ANAPHYLACTIC SHOCK
     Dosage: 1 DOSE
     Dates: start: 20131015

REACTIONS (4)
  - Anaphylactic shock [None]
  - Angina pectoris [None]
  - Muscle spasms [None]
  - Amnesia [None]
